FAERS Safety Report 9309393 (Version 1)
Quarter: 2013Q2

REPORT INFORMATION
  Report Type: Spontaneous
  Country: US (occurrence: US)
  Receive Date: 20130525
  Receipt Date: 20130525
  Transmission Date: 20140414
  Serious: Yes (Other)
  Sender: FDA-Public Use
  Company Number: US-BRISTOL-MYERS SQUIBB COMPANY-18583757

PATIENT
  Age: 53 Year
  Sex: Female
  Weight: 90.7 kg

DRUGS (6)
  1. BYDUREON 2MG VIAL + SYRINGE [Suspect]
     Indication: INSULIN-REQUIRING TYPE 2 DIABETES MELLITUS
     Route: 058
     Dates: start: 201207
  2. LEVEMIR [Concomitant]
     Indication: TYPE 2 DIABETES MELLITUS
     Route: 058
  3. GLIMEPIRIDE [Concomitant]
     Indication: TYPE 2 DIABETES MELLITUS
     Route: 048
  4. JANUMET [Concomitant]
     Indication: TYPE 2 DIABETES MELLITUS
     Route: 048
  5. VICTOZA [Concomitant]
     Indication: TYPE 2 DIABETES MELLITUS
     Route: 058
  6. NEOSPORIN [Concomitant]
     Indication: INJECTION SITE NECROSIS
     Route: 061

REACTIONS (12)
  - Injection site necrosis [Recovering/Resolving]
  - Injection site infection [Recovering/Resolving]
  - Dermatitis contact [Recovering/Resolving]
  - Injection site ulcer [Recovering/Resolving]
  - Injection site induration [Recovering/Resolving]
  - Injection site nodule [Recovering/Resolving]
  - Injection site pruritus [Recovering/Resolving]
  - Injection site erythema [Recovering/Resolving]
  - Injection site scab [Recovering/Resolving]
  - Injection site warmth [Recovering/Resolving]
  - Injection site haematoma [Recovering/Resolving]
  - Off label use [Not Recovered/Not Resolved]
